FAERS Safety Report 12764069 (Version 1)
Quarter: 2016Q3

REPORT INFORMATION
  Report Type: Spontaneous
  Country: JP (occurrence: JP)
  Receive Date: 20160920
  Receipt Date: 20160920
  Transmission Date: 20161109
  Serious: Yes (Life-Threatening, Other)
  Sender: FDA-Public Use
  Company Number: JP-OTSUKA-02100-JPN-00-0110

PATIENT
  Age: 63 Year
  Sex: Female
  Weight: 64 kg

DRUGS (11)
  1. PREDOPA                            /00360702/ [Concomitant]
     Indication: RENAL DISORDER
     Dosage: 9 MG, Q1HR
     Route: 041
     Dates: start: 20001205, end: 20001206
  2. ZANTAC [Concomitant]
     Active Substance: RANITIDINE HYDROCHLORIDE
     Indication: PROPHYLAXIS AGAINST GASTROINTESTINAL ULCER
     Dosage: 50 MG, QD
     Route: 041
     Dates: start: 20001205, end: 20010101
  3. FERROMIA [Concomitant]
     Active Substance: FERROUS CITRATE
     Indication: ANAEMIA
     Dosage: 50 MG, BID
     Route: 048
     Dates: start: 20001206, end: 20001206
  4. PLETAAL TABLETS 100MG [Suspect]
     Active Substance: CILOSTAZOL
     Indication: PLATELET AGGREGATION INHIBITION
     Dosage: 100 MG, BID
     Route: 048
     Dates: start: 200008, end: 200011
  5. SIGMART [Concomitant]
     Active Substance: NICORANDIL
     Indication: VASODILATION PROCEDURE
     Dosage: 5 MG, TID
     Route: 048
     Dates: start: 20001206, end: 20001207
  6. BUFFERIN [Concomitant]
     Active Substance: ASPIRIN
     Indication: PROPHYLAXIS
     Route: 048
     Dates: start: 20001114, end: 20010101
  7. LASIX [Concomitant]
     Active Substance: FUROSEMIDE
     Indication: POLYURIA
     Route: 040
     Dates: start: 20001205, end: 20010101
  8. PANTOL [Concomitant]
     Active Substance: DEXPANTHENOL
     Indication: GASTROINTESTINAL MOTILITY DISORDER
     Dosage: 500 MG, BID
     Route: 041
     Dates: start: 20001205, end: 20010101
  9. DOBUTREX [Concomitant]
     Active Substance: DOBUTAMINE HYDROCHLORIDE
     Indication: PRODUCT USED FOR UNKNOWN INDICATION
     Route: 041
     Dates: start: 20001205, end: 20001207
  10. LIPOVAS ^BANYU^ [Concomitant]
     Indication: HYPERLIPIDAEMIA
     Dosage: 5 MG, QD
     Route: 048
     Dates: start: 20001206, end: 20001206
  11. PLETAAL TABLETS 100MG [Suspect]
     Active Substance: CILOSTAZOL
     Dosage: 100 MG, BID
     Route: 048
     Dates: start: 20001206, end: 20001207

REACTIONS (4)
  - Ventricular tachycardia [Recovered/Resolved]
  - Long QT syndrome [Recovered/Resolved]
  - Electrocardiogram QT prolonged [Recovered/Resolved]
  - Ventricular fibrillation [Recovered/Resolved]

NARRATIVE: CASE EVENT DATE: 20001207
